FAERS Safety Report 7331390-8 (Version None)
Quarter: 2011Q1

REPORT INFORMATION
  Report Type: 
  Country: None (occurrence: None)
  Receive Date: 20110304
  Receipt Date: 20110223
  Transmission Date: 20110831
  Serious: Yes (Other)
  Sender: FDA-Public Use
  Company Number: US-BAYER-2011-013165

PATIENT
  Sex: Female

DRUGS (2)
  1. MIRENA [Suspect]
     Indication: CONTRACEPTION
     Dosage: UNK
     Route: 015
     Dates: start: 20110118, end: 20110129
  2. MIRENA [Suspect]
     Indication: MENORRHAGIA

REACTIONS (4)
  - MUSCLE SPASMS [None]
  - MENORRHAGIA [None]
  - DEVICE EXPULSION [None]
  - HAEMOGLOBIN ABNORMAL [None]
